FAERS Safety Report 15516703 (Version 2)
Quarter: 2018Q4

REPORT INFORMATION
  Report Type: Report from Study
  Country: None (occurrence: PT)
  Receive Date: 20181017
  Receipt Date: 20181126
  Transmission Date: 20190205
  Serious: Yes (Other)
  Sender: FDA-Public Use
  Company Number: PT-ABBVIE-18K-130-2521111-00

PATIENT
  Sex: Male

DRUGS (6)
  1. HUMIRA [Suspect]
     Active Substance: ADALIMUMAB
     Indication: CROHN^S DISEASE
     Dosage: LOADING DOSE 1
     Route: 058
     Dates: start: 20180326, end: 20180326
  2. LORAZEPAM. [Concomitant]
     Active Substance: LORAZEPAM
     Indication: SLEEP DISORDER
     Dosage: STARTED BEFORE HUMIRA
     Route: 048
  3. HUMIRA [Suspect]
     Active Substance: ADALIMUMAB
     Dosage: LOADING DOSE 2
     Route: 058
     Dates: start: 20180409, end: 20180409
  4. HUMIRA [Suspect]
     Active Substance: ADALIMUMAB
     Route: 058
     Dates: start: 20180423, end: 201808
  5. ISONIAZID. [Concomitant]
     Active Substance: ISONIAZID
     Indication: TUBERCULOSIS
     Dosage: STARTED BEFORE HUMIRA
     Route: 048
  6. HUMIRA [Suspect]
     Active Substance: ADALIMUMAB
     Route: 058
     Dates: start: 201808

REACTIONS (4)
  - Drug ineffective [Not Recovered/Not Resolved]
  - Fistula [Not Recovered/Not Resolved]
  - Impaired healing [Not Recovered/Not Resolved]
  - Purulent discharge [Not Recovered/Not Resolved]

NARRATIVE: CASE EVENT DATE: 2018
